FAERS Safety Report 8762716 (Version 1)
Quarter: 2012Q4

REPORT INFORMATION
  Report Type: 
  Country: US (occurrence: US)
  Receive Date: 20120830
  Receipt Date: 20120830
  Transmission Date: 20130627
  Serious: Yes (Hospitalization, Other)
  Sender: FDA-Public Use
  Company Number: US-AMGEN-201112

PATIENT
  Age: 43 Year
  Sex: Female

DRUGS (4)
  1. NEUPOGEN [Suspect]
     Indication: CHEMOTHERAPY
     Dosage: 300 mug, UNK
     Route: 058
     Dates: start: 19920308, end: 19920311
  2. CYCLOPHOSPHAMIDE [Concomitant]
     Dosage: UNK UNK, UNK
  3. DOXORUBICIN HYDROCHLORIDE [Concomitant]
     Dosage: UNK UNK, UNK
  4. FLUOROURACIL [Concomitant]
     Dosage: UNK UNK, UNK

REACTIONS (3)
  - Arthritis [Recovered/Resolved]
  - Pyrexia [Recovered/Resolved]
  - Arthralgia [Recovered/Resolved]
